FAERS Safety Report 4704617-6 (Version None)
Quarter: 2005Q2

REPORT INFORMATION
  Report Type: 
  Country: None (occurrence: None)
  Receive Date: 20050629
  Receipt Date: 20050617
  Transmission Date: 20051028
  Serious: Yes (Other)
  Sender: FDA-Public Use
  Company Number: 215430

PATIENT
  Age: 48 Year
  Sex: Male
  Weight: 56 kg

DRUGS (8)
  1. RITUXAN [Suspect]
     Indication: NON-HODGKIN'S LYMPHOMA
     Dosage: 375 MG, 1/MONTH, INTRAVENOUS
     Route: 042
     Dates: start: 20020124, end: 20020424
  2. MITOXANTRONE [Suspect]
     Indication: NON-HODGKIN'S LYMPHOMA
     Dosage: 15MG, INTRAVENOUS
     Route: 042
     Dates: start: 20020125, end: 20020328
  3. FLUDARABINE PHOSPHATE [Suspect]
     Indication: NON-HODGKIN'S LYMPHOMA
     Dosage: 30 MG, INTRAVENOUS
     Route: 042
     Dates: start: 20020125, end: 20020129
  4. FLUDARABINE PHOSPHATE [Suspect]
     Indication: NON-HODGKIN'S LYMPHOMA
     Dosage: 38 MG, INTRAVENOUS
     Route: 042
     Dates: start: 20020222, end: 20020328
  5. DECADRON [Concomitant]
  6. ZANTAC [Concomitant]
  7. RESTAMIN (CHLORPHENIRAMINE MALEATE) [Concomitant]
  8. LENOGRASTIM (LENOGRASTIM) [Concomitant]

REACTIONS (2)
  - NEUTROPENIA [None]
  - WHITE BLOOD CELL COUNT DECREASED [None]
